FAERS Safety Report 21618532 (Version 1)
Quarter: 2022Q4

REPORT INFORMATION
  Report Type: Spontaneous
  Country: US (occurrence: US)
  Receive Date: 20221119
  Receipt Date: 20221119
  Transmission Date: 20230112
  Serious: No
  Sender: FDA-Public Use
  Company Number: US-002147023-NVSC2022US260120

PATIENT
  Sex: Female

DRUGS (1)
  1. NITRO-BID [Suspect]
     Active Substance: NITROGLYCERIN
     Indication: Product used for unknown indication
     Dosage: UNK (30 G)
     Route: 065

REACTIONS (3)
  - Dermal absorption impaired [Unknown]
  - Product supply issue [Unknown]
  - Drug ineffective [Unknown]
